FAERS Safety Report 11750026 (Version 1)
Quarter: 2015Q4

REPORT INFORMATION
  Report Type: Spontaneous
  Country: US (occurrence: None)
  Receive Date: 20151117
  Receipt Date: 20151117
  Transmission Date: 20160304
  Serious: Yes (Other)
  Sender: FDA-Public Use
  Company Number: None

PATIENT
  Sex: Male
  Weight: 90.72 kg

DRUGS (1)
  1. AMITIZA [Suspect]
     Active Substance: LUBIPROSTONE
     Indication: PNEUMONIA KLEBSIELLA
     Dosage: 1 DOSE ONLY
     Route: 048

REACTIONS (5)
  - Chest discomfort [None]
  - Gait disturbance [None]
  - Arthralgia [None]
  - Mobility decreased [None]
  - Pain in extremity [None]
